FAERS Safety Report 4294258-X (Version None)
Quarter: 2004Q1

REPORT INFORMATION
  Report Type: 
  Country: None (occurrence: None)
  Receive Date: 20040211
  Receipt Date: 20030725
  Transmission Date: 20041129
  Serious: No
  Sender: FDA-Public Use
  Company Number: US-GLAXOSMITHKLINE-A0418951A

PATIENT
  Sex: Female

DRUGS (2)
  1. LAMICTAL [Suspect]
     Dosage: 150MG UNKNOWN
     Route: 048
     Dates: start: 20030430
  2. LITHIUM CARBONATE [Concomitant]

REACTIONS (1)
  - RASH [None]
